FAERS Safety Report 6092938-7 (Version None)
Quarter: 2009Q1

REPORT INFORMATION
  Report Type: 
  Country: None (occurrence: None)
  Receive Date: 20090223
  Receipt Date: 20090121
  Transmission Date: 20090719
  Serious: Yes (Hospitalization)
  Sender: FDA-Public Use
  Company Number: DSA_33258_2009

PATIENT
  Sex: Male

DRUGS (1)
  1. DILTIAZEM [Suspect]
     Indication: DRUG USE FOR UNKNOWN INDICATION
     Dosage: (60 MG BID ORAL)
     Route: 048
     Dates: start: 20081124, end: 20081205

REACTIONS (2)
  - ACUTE PULMONARY OEDEMA [None]
  - GENERALISED OEDEMA [None]
